FAERS Safety Report 10673456 (Version 1)
Quarter: 2014Q4

REPORT INFORMATION
  Report Type: Spontaneous
  Country: IT (occurrence: IT)
  Receive Date: 20141224
  Receipt Date: 20141224
  Transmission Date: 20150529
  Serious: Yes (Other)
  Sender: FDA-Public Use
  Company Number: IT-ACCORD-027590

PATIENT
  Age: 69 Year
  Sex: Female

DRUGS (1)
  1. LETROZOLE. [Suspect]
     Active Substance: LETROZOLE
     Indication: BREAST CANCER
     Route: 048
     Dates: start: 20131025

REACTIONS (6)
  - Arthralgia [Recovered/Resolved]
  - Nausea [Recovered/Resolved]
  - Product substitution issue [Unknown]
  - Eye disorder [Recovered/Resolved]
  - Diarrhoea [Recovered/Resolved]
  - Aptyalism [Recovered/Resolved]

NARRATIVE: CASE EVENT DATE: 20131101
